FAERS Safety Report 17138862 (Version 1)
Quarter: 2019Q4

REPORT INFORMATION
  Report Type: Report from Study
  Country: US (occurrence: US)
  Receive Date: 20191211
  Receipt Date: 20191211
  Transmission Date: 20200122
  Serious: Yes (Hospitalization)
  Sender: FDA-Public Use
  Company Number: PHHY2019US222715

PATIENT
  Age: 10 Year
  Sex: Female
  Weight: 44 kg

DRUGS (3)
  1. PIQRAY [Suspect]
     Active Substance: ALPELISIB
     Dosage: 50 UNK
     Route: 048
     Dates: start: 20190924
  2. CHOLECALCIFEROL [Concomitant]
     Active Substance: CHOLECALCIFEROL
     Indication: SUPPLEMENTATION THERAPY
     Dosage: 200 U, UNK
     Route: 065
     Dates: start: 20180926
  3. PIQRAY [Suspect]
     Active Substance: ALPELISIB
     Indication: MACROCEPHALY
     Dosage: 50 MG, UNK
     Route: 048
     Dates: start: 20190514, end: 20190922

REACTIONS (11)
  - Dehydration [Recovered/Resolved]
  - Vomiting [Recovered/Resolved]
  - White blood cell count increased [Recovered/Resolved]
  - Lymphocyte count decreased [Recovered/Resolved]
  - Lethargy [Recovered/Resolved]
  - Somnolence [Unknown]
  - Acidosis [Recovered/Resolved]
  - Pyrexia [Unknown]
  - Neutrophil count increased [Recovered/Resolved]
  - Blood bicarbonate decreased [Recovered/Resolved]
  - Hypophagia [Unknown]

NARRATIVE: CASE EVENT DATE: 20190922
